FAERS Safety Report 9836651 (Version 1)
Quarter: 2013Q4

REPORT INFORMATION
  Report Type: Spontaneous
  Country: US (occurrence: None)
  Receive Date: 20131121
  Receipt Date: 20131121
  Transmission Date: 20140711
  Serious: No
  Sender: FDA-Public Use
  Company Number: 1000047461

PATIENT
  Age: 79 Year
  Sex: Female

DRUGS (4)
  1. TUDORZA PRESSAIR [Suspect]
     Route: 055
     Dates: start: 20130731, end: 20130731
  2. COMBIVENT (COMBIVENT) [Concomitant]
  3. ADVAIR (SERETIDE) (SERETIDE) [Concomitant]
  4. ALBUTEROL (ALBUTEROL) (ALBUTEROL) [Concomitant]

REACTIONS (1)
  - Oral discomfort [None]
